FAERS Safety Report 23766605 (Version 2)
Quarter: 2025Q2

REPORT INFORMATION
  Report Type: Spontaneous
  Country: US (occurrence: US)
  Receive Date: 20240422
  Receipt Date: 20250517
  Transmission Date: 20250716
  Serious: Yes (Other)
  Sender: AUROBINDO
  Company Number: US-AUROBINDO-AUR-APL-2024-018261

PATIENT
  Age: 63 Year
  Sex: Male

DRUGS (4)
  1. DEFERASIROX [Suspect]
     Active Substance: DEFERASIROX
     Indication: Product used for unknown indication
     Dosage: 720 MILLIGRAM, TWO TIMES A DAY
     Route: 065
  2. DEFERASIROX [Suspect]
     Active Substance: DEFERASIROX
     Route: 065
  3. DEFERASIROX [Suspect]
     Active Substance: DEFERASIROX
     Route: 065
  4. DEFERASIROX [Suspect]
     Active Substance: DEFERASIROX
     Route: 065

REACTIONS (1)
  - Retinopathy [Unknown]
